FAERS Safety Report 10547854 (Version 1)
Quarter: 2014Q4

REPORT INFORMATION
  Report Type: Spontaneous
  Country: US (occurrence: US)
  Receive Date: 20141028
  Receipt Date: 20141028
  Transmission Date: 20150529
  Serious: Yes (Death, Other)
  Sender: FDA-Public Use
  Company Number: US-BAYER-2014-154392

PATIENT
  Age: 0 Day
  Sex: Female

DRUGS (1)
  1. MIRENA [Suspect]
     Active Substance: LEVONORGESTREL
     Dosage: UNK
     Route: 064

REACTIONS (6)
  - Aortic valve disease [None]
  - Atrial septal defect [None]
  - Aortic stenosis [Fatal]
  - Congenital anomaly [Fatal]
  - Heart disease congenital [None]
  - Coarctation of the aorta [Fatal]

NARRATIVE: CASE EVENT DATE: 20130807
